FAERS Safety Report 10866168 (Version 1)
Quarter: 2015Q1

REPORT INFORMATION
  Report Type: Spontaneous
  Country: US (occurrence: None)
  Receive Date: 20150219
  Receipt Date: 20150219
  Transmission Date: 20150721
  Serious: Yes (Hospitalization)
  Sender: FDA-Public Use
  Company Number: US-H14001-15-00242

PATIENT
  Age: 50 Year
  Sex: Female

DRUGS (9)
  1. LITHIUM [Suspect]
     Active Substance: LITHIUM CARBONATE
     Indication: PRODUCT USED FOR UNKNOWN INDICATION
     Dosage: 3-4TIMES
  2. CLONAZEPAM (CLONAZEPAM) [Concomitant]
     Active Substance: CLONAZEPAM
  3. QUETIAPINE (QUETIAPINE) [Concomitant]
     Active Substance: QUETIAPINE
  4. DULOXETINE (DULOXETINE) [Concomitant]
     Active Substance: DULOXETINE
  5. DICYCLOMINE [Concomitant]
     Active Substance: DICYCLOMINE HYDROCHLORIDE
  6. OLMESARTAN (OLMESARTAN) [Concomitant]
  7. LEVOTHYROXINE (LEVORTHYROXINE) [Concomitant]
  8. GABAPENTIN (GABAPENTIN) [Concomitant]
     Active Substance: GABAPENTIN
  9. CARISOPRODOL (CARISOPRODOL) [Concomitant]
     Active Substance: CARISOPRODOL

REACTIONS (4)
  - Blood glucose increased [None]
  - Toxicity to various agents [None]
  - Posterior reversible encephalopathy syndrome [None]
  - Blood creatinine increased [None]
